FAERS Safety Report 6670080-1 (Version None)
Quarter: 2010Q2

REPORT INFORMATION
  Report Type: 
  Country: None (occurrence: None)
  Receive Date: 20100406
  Receipt Date: 20100217
  Transmission Date: 20101027
  Serious: No
  Sender: FDA-Public Use
  Company Number: US-ALLERGAN-1001775US

PATIENT
  Sex: Female

DRUGS (7)
  1. LATISSE [Suspect]
     Indication: GROWTH OF EYELASHES
     Dosage: 1 GTT, QHS
     Route: 061
  2. SYNTHROID [Concomitant]
     Indication: HYPOTHYROIDISM
  3. TOPROL-XL [Concomitant]
  4. CELEXA [Concomitant]
  5. LIPITOR [Concomitant]
  6. ASPIRIN [Concomitant]
  7. MULTI-VITAMIN [Concomitant]

REACTIONS (1)
  - SKIN HYPERPIGMENTATION [None]
